FAERS Safety Report 15266253 (Version 3)
Quarter: 2018Q4

REPORT INFORMATION
  Report Type: Spontaneous
  Country: JP (occurrence: JP)
  Receive Date: 20180810
  Receipt Date: 20181127
  Transmission Date: 20190204
  Serious: Yes (Other)
  Sender: FDA-Public Use
  Company Number: JP-JNJFOC-20180804122

PATIENT
  Sex: Female

DRUGS (3)
  1. LYRICA [Concomitant]
     Active Substance: PREGABALIN
     Route: 048
  2. TRAMADOL HYDROCHLORIDE AND ACETAMINOPHEN [Suspect]
     Active Substance: ACETAMINOPHEN\TRAMADOL HYDROCHLORIDE
     Indication: PAIN
     Route: 048
     Dates: start: 201802
  3. TRAMADOL HYDROCHLORIDE AND ACETAMINOPHEN [Suspect]
     Active Substance: ACETAMINOPHEN\TRAMADOL HYDROCHLORIDE
     Indication: PAIN
     Route: 048
     Dates: start: 2018

REACTIONS (4)
  - Haemorrhage subcutaneous [Unknown]
  - Internal haemorrhage [Unknown]
  - Inadequate analgesia [Unknown]
  - Feeling abnormal [Unknown]

NARRATIVE: CASE EVENT DATE: 2018
